FAERS Safety Report 12805800 (Version 1)
Quarter: 2016Q4

REPORT INFORMATION
  Report Type: Spontaneous
  Country: US (occurrence: US)
  Receive Date: 20161004
  Receipt Date: 20161004
  Transmission Date: 20170207
  Serious: No
  Sender: FDA-Public Use
  Company Number: US-BAYER-2016-188269

PATIENT
  Age: 74 Year
  Sex: Male
  Weight: 78.5 kg

DRUGS (2)
  1. MIRAFIBER SUGAR FREE ORANGE POWDER [Suspect]
     Active Substance: METHYLCELLULOSES
     Indication: CONSTIPATION
     Dosage: UNK
     Route: 048
     Dates: start: 20160920, end: 20160922
  2. MIRALAX [Suspect]
     Active Substance: POLYETHYLENE GLYCOL 3350
     Indication: GASTROINTESTINAL DISORDER
     Dosage: 1 DF, UNK
     Route: 048

REACTIONS (6)
  - Drug ineffective for unapproved indication [Recovering/Resolving]
  - Product use issue [None]
  - Product use issue [Not Recovered/Not Resolved]
  - Product use issue [Recovered/Resolved]
  - Product use issue [Recovered/Resolved]
  - Product use issue [Recovered/Resolved]

NARRATIVE: CASE EVENT DATE: 20160920
